FAERS Safety Report 9349536 (Version 3)
Quarter: 2013Q3

REPORT INFORMATION
  Report Type: Spontaneous
  Country: US (occurrence: US)
  Receive Date: 20130614
  Receipt Date: 20130724
  Transmission Date: 20140515
  Serious: Yes (Death, Life-Threatening, Hospitalization, Disabling, Other)
  Sender: FDA-Public Use
  Company Number: US-GLAXOSMITHKLINE-A1027182A

PATIENT
  Age: 87 Year
  Sex: Male

DRUGS (1)
  1. AVANDIA [Suspect]
     Indication: DIABETES MELLITUS
     Route: 065
     Dates: start: 20000619, end: 200606

REACTIONS (12)
  - Pulmonary fibrosis [Fatal]
  - Myocardial infarction [Unknown]
  - Cardiac failure congestive [Fatal]
  - Lobar pneumonia [Unknown]
  - Dyspnoea [Unknown]
  - Cough [Unknown]
  - Pyrexia [Unknown]
  - Troponin increased [Unknown]
  - Ejection fraction decreased [Unknown]
  - Cardiomyopathy [Unknown]
  - Ventricular dyskinesia [Unknown]
  - Coronary artery disease [Unknown]
